FAERS Safety Report 4445837-8 (Version None)
Quarter: 2004Q3

REPORT INFORMATION
  Report Type: 
  Country: None (occurrence: None)
  Receive Date: 20040903
  Receipt Date: 20040824
  Transmission Date: 20050211
  Serious: Yes (Other)
  Sender: FDA-Public Use
  Company Number: HQWYE644427AUG04

PATIENT
  Age: 67 Year
  Sex: Male
  Weight: 108.96 kg

DRUGS (6)
  1. PRIMATENE MIST [Suspect]
     Indication: ASTHMA
     Dosage: 2 PUFFS DAILY, INHALATION
     Route: 055
     Dates: start: 20040823, end: 20040824
  2. BEXTRA [Concomitant]
  3. PROCARDIA [Concomitant]
  4. TOPRAL (SULTOPRIDE) [Concomitant]
  5. EFFEXOR [Concomitant]
  6. CLARINEX [Concomitant]

REACTIONS (1)
  - BLOOD PRESSURE INCREASED [None]
